FAERS Safety Report 5051569-8 (Version None)
Quarter: 2006Q3

REPORT INFORMATION
  Report Type: 
  Country: None (occurrence: None)
  Receive Date: 20060711
  Receipt Date: 20060616
  Transmission Date: 20061208
  Serious: Yes (Other)
  Sender: FDA-Public Use
  Company Number: US200606004129

PATIENT
  Age: 61 Year
  Sex: Male

DRUGS (2)
  1. CYMBALTA [Suspect]
     Indication: NEUROPATHY PERIPHERAL
     Dosage: 30 MEQ, DAILY (1/D)
     Dates: start: 20051001, end: 20060613
  2. INSULIN [Concomitant]

REACTIONS (5)
  - BLINDNESS UNILATERAL [None]
  - BLOOD PRESSURE INCREASED [None]
  - EYE HAEMORRHAGE [None]
  - REFUSAL OF TREATMENT BY PATIENT [None]
  - VISUAL ACUITY REDUCED [None]
